FAERS Safety Report 26094060 (Version 1)
Quarter: 2025Q4

REPORT INFORMATION
  Report Type: Spontaneous
  Country: US (occurrence: US)
  Receive Date: 20251126
  Receipt Date: 20251126
  Transmission Date: 20260117
  Serious: Yes (Hospitalization, Other)
  Sender: MERCK SHARP & DOHME LLC
  Company Number: None

PATIENT
  Sex: Female

DRUGS (11)
  1. WINREVAIR [Suspect]
     Active Substance: SOTATERCEPT-CSRK
     Dosage: DOSE DESCRIPTION : 0.7 ML EVERY 3 WEEKS SQ?DAILY DOSE : 0.033 MILLILITER?REGIMEN DOSE : 0.7  MILL...
     Route: 058
  2. WINREVAIR [Suspect]
     Active Substance: SOTATERCEPT-CSRK
  3. WINREVAIR [Suspect]
     Active Substance: SOTATERCEPT-CSRK
  4. WINREVAIR [Suspect]
     Active Substance: SOTATERCEPT-CSRK
  5. SOTATERCEPT [Suspect]
     Active Substance: SOTATERCEPT
     Dosage: 0.7 M,L EVERY 3 WEEKS SQ
     Route: 058
  6. SOTATERCEPT [Suspect]
     Active Substance: SOTATERCEPT
     Dates: start: 202407
  7. SOTATERCEPT [Suspect]
     Active Substance: SOTATERCEPT
  8. SOTATERCEPT [Suspect]
     Active Substance: SOTATERCEPT
  9. SILDENAFIL CITRATE [Suspect]
     Active Substance: SILDENAFIL CITRATE
     Indication: Pulmonary arterial hypertension
     Dosage: DOSE DESCRIPTION : 20 MILLIGRAM, TID?DAILY DOSE : 60 MILLIGRAM
     Route: 048
     Dates: start: 202302
  10. LASIX [Suspect]
     Active Substance: FUROSEMIDE
  11. OPSUMIT [Suspect]
     Active Substance: MACITENTAN

REACTIONS (5)
  - Coma [Unknown]
  - Blister [Unknown]
  - Septic shock [Unknown]
  - Pneumonia aspiration [Unknown]
  - Clostridium difficile infection [Unknown]
